FAERS Safety Report 15435056 (Version 2)
Quarter: 2019Q3

REPORT INFORMATION
  Report Type: Spontaneous
  Country: TW (occurrence: TW)
  Receive Date: 20180927
  Receipt Date: 20190919
  Transmission Date: 20191004
  Serious: Yes (Other)
  Sender: FDA-Public Use
  Company Number: TW-ALEXION PHARMACEUTICALS INC.-A201811080

PATIENT
  Age: 36 Year
  Sex: Female
  Weight: 55.5 kg

DRUGS (3)
  1. SOLIRIS [Suspect]
     Active Substance: ECULIZUMAB
     Indication: PAROXYSMAL NOCTURNAL HAEMOGLOBINURIA
     Dosage: UNK
     Route: 065
  2. FOLIC ACID. [Concomitant]
     Active Substance: FOLIC ACID
     Indication: PRODUCT USED FOR UNKNOWN INDICATION
     Dosage: 5 ML, UNK
     Route: 065
     Dates: start: 20130104
  3. SOLIRIS [Suspect]
     Active Substance: ECULIZUMAB
     Dosage: 900 MG, Q2W
     Route: 065

REACTIONS (3)
  - Pregnancy [Recovered/Resolved]
  - Haemoglobin decreased [Recovered/Resolved]
  - Blood lactate dehydrogenase increased [Unknown]
